FAERS Safety Report 15888447 (Version 1)
Quarter: 2019Q1

REPORT INFORMATION
  Report Type: Spontaneous
  Country: US (occurrence: US)
  Receive Date: 20190108
  Receipt Date: 20190108
  Transmission Date: 20190417
  Serious: Yes (Hospitalization)
  Sender: FDA-Public Use
  Company Number: None

PATIENT
  Age: 64 Year
  Sex: Male
  Weight: 71.3 kg

DRUGS (1)
  1. CISPLATIN (119875) [Suspect]
     Active Substance: CISPLATIN

REACTIONS (4)
  - Platelet count decreased [None]
  - White blood cell count decreased [None]
  - Febrile neutropenia [None]
  - Vomiting [None]

NARRATIVE: CASE EVENT DATE: 20190102
